FAERS Safety Report 10917816 (Version 1)
Quarter: 2015Q1

REPORT INFORMATION
  Report Type: Spontaneous
  Country: US (occurrence: US)
  Receive Date: 20150316
  Receipt Date: 20150316
  Transmission Date: 20150721
  Serious: Yes (Hospitalization, Other)
  Sender: FDA-Public Use
  Company Number: US-GLAXOSMITHKLINE-US2015GSK034234

PATIENT
  Age: 48 Year
  Sex: Female
  Weight: 108.84 kg

DRUGS (3)
  1. FLONASE [Suspect]
     Active Substance: FLUTICASONE PROPIONATE
     Indication: RHINITIS ALLERGIC
     Dosage: UNK, U
  2. PREDNISONE. [Suspect]
     Active Substance: PREDNISONE
     Indication: PRODUCT USED FOR UNKNOWN INDICATION
     Dosage: UNK, U
     Dates: end: 20150228
  3. ADVAIR HFA [Suspect]
     Active Substance: FLUTICASONE PROPIONATE\SALMETEROL XINAFOATE
     Indication: ASTHMA
     Dosage: UNK UNK, U
     Dates: end: 201412

REACTIONS (6)
  - Drug dose omission [Unknown]
  - Asthma [Unknown]
  - Hospitalisation [Unknown]
  - Pyrexia [Unknown]
  - Cough [Unknown]
  - Dysarthria [Unknown]

NARRATIVE: CASE EVENT DATE: 201501
